FAERS Safety Report 6662384-3 (Version None)
Quarter: 2010Q1

REPORT INFORMATION
  Report Type: 
  Country: None (occurrence: None)
  Receive Date: 20100331
  Receipt Date: 20100318
  Transmission Date: 20100710
  Serious: Yes (Other)
  Sender: FDA-Public Use
  Company Number: TW-ELI_LILLY_AND_COMPANY-TW201003007566

PATIENT
  Age: 66 Year
  Sex: Male

DRUGS (5)
  1. CYMBALTA [Suspect]
     Indication: DEPRESSION
     Dosage: 60 MG, EVERY OTHER DAY
     Route: 065
     Dates: start: 20100222, end: 20100301
  2. CYMBALTA [Suspect]
     Dosage: 60 MG, DAILY (1/D)
     Route: 065
     Dates: start: 20100301, end: 20100316
  3. TRAZODONE [Concomitant]
     Dosage: UNK, UNKNOWN
     Route: 065
  4. TRAZODONE [Concomitant]
     Dosage: 100 MG, UNKNOWN
     Route: 065
     Dates: start: 20100201, end: 20100201
  5. SULPIRIDE [Concomitant]
     Dosage: 50 MG, UNKNOWN
     Route: 065
     Dates: start: 20100201, end: 20100201

REACTIONS (3)
  - DIZZINESS [None]
  - HYPOTENSION [None]
  - OFF LABEL USE [None]
